FAERS Safety Report 16984645 (Version 5)
Quarter: 2020Q4

REPORT INFORMATION
  Report Type: Spontaneous
  Country: US (occurrence: US)
  Receive Date: 20191101
  Receipt Date: 20201110
  Transmission Date: 20210113
  Serious: No
  Sender: FDA-Public Use
  Company Number: US-PFIZER INC-2019470905

PATIENT
  Age: 68 Year
  Sex: Female

DRUGS (2)
  1. LYRICA [Suspect]
     Active Substance: PREGABALIN
     Dosage: UNK, ALTERNATE DAY (SOMETIMES TAKES PREGABALIN EVERY OTHER DAY)
  2. LYRICA [Suspect]
     Active Substance: PREGABALIN
     Dosage: UNK

REACTIONS (5)
  - Intentional product misuse [Unknown]
  - Dyspepsia [Unknown]
  - Fatigue [Unknown]
  - Drug hypersensitivity [Unknown]
  - Intentional dose omission [Unknown]
